FAERS Safety Report 11219138 (Version 1)
Quarter: 2015Q2

REPORT INFORMATION
  Report Type: Spontaneous
  Country: US (occurrence: US)
  Receive Date: 20150625
  Receipt Date: 20150625
  Transmission Date: 20150821
  Serious: No
  Sender: FDA-Public Use
  Company Number: US-ASTRAZENECA-2015SE42391

PATIENT
  Age: 30172 Day
  Sex: Female
  Weight: 54.4 kg

DRUGS (2)
  1. SYMBICORT [Suspect]
     Active Substance: BUDESONIDE\FORMOTEROL FUMARATE DIHYDRATE
     Indication: EMPHYSEMA
     Dosage: 160/4.5 UG,TWO PUFFS TWICE DAILY
     Route: 055
     Dates: start: 201412
  2. SYMBICORT [Suspect]
     Active Substance: BUDESONIDE\FORMOTEROL FUMARATE DIHYDRATE
     Indication: CHRONIC OBSTRUCTIVE PULMONARY DISEASE
     Dosage: 160/4.5 UG,TWO PUFFS TWICE DAILY
     Route: 055
     Dates: start: 201412

REACTIONS (4)
  - Device malfunction [Unknown]
  - Device difficult to use [Unknown]
  - Nervousness [Recovered/Resolved]
  - Blood pressure increased [Recovered/Resolved]

NARRATIVE: CASE EVENT DATE: 20150504
